FAERS Safety Report 9610618 (Version 1)
Quarter: 2013Q4

REPORT INFORMATION
  Report Type: Spontaneous
  Country: TR (occurrence: TR)
  Receive Date: 20131009
  Receipt Date: 20131009
  Transmission Date: 20140711
  Serious: Yes (Death, Other)
  Sender: FDA-Public Use
  Company Number: PHHY2013TR111783

PATIENT
  Age: 52 Year
  Sex: Female

DRUGS (13)
  1. CICLOSPORIN [Suspect]
     Indication: PROPHYLAXIS AGAINST GRAFT VERSUS HOST DISEASE
  2. FLUDARABINE [Suspect]
     Indication: CHRONIC LYMPHOCYTIC LEUKAEMIA
     Dosage: 20 MG/M2, UNK
     Dates: start: 201007, end: 201012
  3. FLUDARABINE [Suspect]
     Indication: STEM CELL TRANSPLANT
     Dosage: 20 MG/M2, UNK
     Dates: start: 201102
  4. METHOTREXATE [Suspect]
     Indication: PROPHYLAXIS AGAINST GRAFT VERSUS HOST DISEASE
  5. CYCLOPHOSPHAMIDE [Suspect]
     Indication: CHRONIC LYMPHOCYTIC LEUKAEMIA
     Dates: start: 200901, end: 200905
  6. CYCLOPHOSPHAMIDE [Suspect]
     Indication: STEM CELL TRANSPLANT
     Dosage: 200 MG/M2, DAYS 3 TO 5
  7. CYCLOPHOSPHAMIDE [Suspect]
     Dosage: 500 MG/M2, UNK
     Dates: start: 201102
  8. RITUXIMAB [Suspect]
     Indication: CHRONIC LYMPHOCYTIC LEUKAEMIA
     Dosage: 375-500 MG/M2, DAY 2
     Dates: start: 201007, end: 201012
  9. RITUXIMAB [Suspect]
  10. ALEMTUZUMAB [Suspect]
     Dates: start: 201007, end: 201012
  11. VINCRISTINE [Concomitant]
  12. PREDNISONE [Concomitant]
     Dates: start: 200901, end: 200905
  13. GANCICLOVIR [Concomitant]
     Indication: CYTOMEGALOVIRUS INFECTION
     Dosage: 5 MG/KG, BID

REACTIONS (25)
  - Richter^s syndrome [Fatal]
  - Diffuse large B-cell lymphoma [Fatal]
  - Chronic lymphocytic leukaemia [Fatal]
  - Peritoneal neoplasm [Fatal]
  - Splenomegaly [Fatal]
  - Hepatic lesion [Fatal]
  - Lymphadenopathy [Fatal]
  - Jaundice [Fatal]
  - Abdominal distension [Unknown]
  - Pleuritic pain [Unknown]
  - Ascites [Unknown]
  - Bile duct obstruction [Unknown]
  - General physical health deterioration [Unknown]
  - Dehydration [Unknown]
  - Pleural effusion [Unknown]
  - Acute graft versus host disease in intestine [Unknown]
  - Acute graft versus host disease in skin [Unknown]
  - Cytomegalovirus infection [Unknown]
  - Pyrexia [Unknown]
  - Skin lesion [Unknown]
  - Diarrhoea [Unknown]
  - Fatigue [Unknown]
  - Rash erythematous [Unknown]
  - Rash maculo-papular [Unknown]
  - Conjunctivitis [Unknown]
